FAERS Safety Report 20920971 (Version 1)
Quarter: 2022Q2

REPORT INFORMATION
  Report Type: Spontaneous
  Country: IN (occurrence: IN)
  Receive Date: 20220606
  Receipt Date: 20220606
  Transmission Date: 20220721
  Serious: Yes (Other)
  Sender: FDA-Public Use
  Company Number: IN-NOVARTISPH-NVSC2022IN126284

PATIENT
  Age: 18 Month
  Sex: Male
  Weight: 10 kg

DRUGS (2)
  1. CYCLOSPORINE [Suspect]
     Active Substance: CYCLOSPORINE
     Indication: Toxic epidermal necrolysis
     Dosage: 4 MG/KG, UNKNOWN
     Route: 065
  2. ACETAMINOPHEN [Concomitant]
     Active Substance: ACETAMINOPHEN
     Indication: Pyrexia
     Dosage: 50 MILLIGRAM PER MILLILITRE, BID, 250 MG/5 ML
     Route: 065

REACTIONS (3)
  - Toxic epidermal necrolysis [Unknown]
  - Condition aggravated [Unknown]
  - Product use in unapproved indication [Unknown]
